FAERS Safety Report 5738814-8 (Version None)
Quarter: 2008Q2

REPORT INFORMATION
  Report Type: 
  Country: None (occurrence: None)
  Receive Date: 20080515
  Receipt Date: 20080414
  Transmission Date: 20081010
  Serious: No
  Sender: FDA-Public Use
  Company Number: A0716197A

PATIENT
  Age: 40 Year
  Sex: Female
  Weight: 114.1 kg

DRUGS (4)
  1. VERAMYST [Suspect]
     Route: 045
     Dates: start: 20080116, end: 20080117
  2. ACIPHEX [Concomitant]
     Route: 048
  3. LISINOPRIL [Concomitant]
     Indication: HYPERTENSION
     Route: 048
  4. NORGESTIMATE AND ETHINYL ESTRADIOL [Concomitant]
     Route: 048

REACTIONS (1)
  - DIZZINESS [None]
